FAERS Safety Report 8017107-2 (Version None)
Quarter: 2012Q1

REPORT INFORMATION
  Report Type: 
  Country: None (occurrence: None)
  Receive Date: 20120102
  Receipt Date: 20111222
  Transmission Date: 20120608
  Serious: Yes (Other)
  Sender: FDA-Public Use
  Company Number: JP-ROCHE-763928

PATIENT
  Sex: Male
  Weight: 66 kg

DRUGS (4)
  1. XELODA [Suspect]
     Indication: RECTAL CANCER METASTATIC
     Route: 048
     Dates: start: 20100408, end: 20110101
  2. OXALIPLATIN [Suspect]
     Indication: RECTAL CANCER METASTATIC
     Route: 041
  3. XELODA [Suspect]
     Route: 048
     Dates: start: 20110101, end: 20110204
  4. AVASTIN [Suspect]
     Indication: RECTAL CANCER METASTATIC
     Dosage: NOTE: DOSAGE IS UNCERTAIN.
     Route: 041

REACTIONS (2)
  - DEAFNESS [None]
  - HYPOAESTHESIA [None]
